FAERS Safety Report 7511445-5 (Version None)
Quarter: 2011Q2

REPORT INFORMATION
  Report Type: 
  Country: None (occurrence: None)
  Receive Date: 20110531
  Receipt Date: 20110524
  Transmission Date: 20111010
  Serious: Yes (Hospitalization)
  Sender: FDA-Public Use
  Company Number: BR-US-EMD SERONO, INC.-7061820

PATIENT
  Sex: Female

DRUGS (3)
  1. MANTIDAN [Concomitant]
  2. REBIF [Suspect]
     Indication: RELAPSING-REMITTING MULTIPLE SCLEROSIS
     Dates: start: 20050323
  3. BACLOFEN [Concomitant]

REACTIONS (1)
  - URINARY TRACT INFECTION [None]
